FAERS Safety Report 4274509-8 (Version None)
Quarter: 2004Q1

REPORT INFORMATION
  Report Type: 
  Country: None (occurrence: None)
  Receive Date: 20040120
  Receipt Date: 20040120
  Transmission Date: 20041129
  Serious: No
  Sender: FDA-Public Use
  Company Number: None

PATIENT
  Age: 24 Year
  Sex: Male
  Weight: 83.9154 kg

DRUGS (2)
  1. PAXIL CR [Suspect]
     Indication: DEPRESSION
     Dosage: 25 MG DAILY ORAL
     Route: 048
     Dates: start: 20031029, end: 20040118
  2. PAXIL CR [Suspect]
     Indication: SOMNOLENCE
     Dosage: 25 MG DAILY ORAL
     Route: 048
     Dates: start: 20031029, end: 20040118

REACTIONS (3)
  - FEELING ABNORMAL [None]
  - HOMICIDAL IDEATION [None]
  - OBSESSIVE-COMPULSIVE DISORDER [None]
